FAERS Safety Report 12049809 (Version 3)
Quarter: 2016Q3

REPORT INFORMATION
  Report Type: Report from Study
  Country: JP (occurrence: JP)
  Receive Date: 20160208
  Receipt Date: 20160718
  Transmission Date: 20161109
  Serious: Yes (Other)
  Sender: FDA-Public Use
  Company Number: JP-B.I. PHARMACEUTICALS,INC./RIDGEFIELD-2015-BI-17255NB

PATIENT
  Age: 74 Year
  Sex: Male
  Weight: 60.5 kg

DRUGS (2)
  1. GILOTRIF [Suspect]
     Active Substance: AFATINIB
     Dosage: 30 MG
     Route: 065
     Dates: start: 20150216, end: 20150927
  2. GILOTRIF [Suspect]
     Active Substance: AFATINIB
     Indication: LUNG ADENOCARCINOMA
     Dosage: 40 MG
     Route: 065
     Dates: start: 20150108, end: 20150208

REACTIONS (7)
  - Stomatitis [Recovered/Resolved]
  - Malignant neoplasm progression [Not Recovered/Not Resolved]
  - Diarrhoea [Recovered/Resolved]
  - Paronychia [Recovered/Resolved]
  - Pyrexia [Recovered/Resolved]
  - Aortic dissection [Not Recovered/Not Resolved]
  - Rash [Recovered/Resolved]

NARRATIVE: CASE EVENT DATE: 20150108
